FAERS Safety Report 7279274-8 (Version None)
Quarter: 2011Q1

REPORT INFORMATION
  Report Type: 
  Country: None (occurrence: None)
  Receive Date: 20110207
  Receipt Date: 20110131
  Transmission Date: 20110831
  Serious: Yes (Other)
  Sender: FDA-Public Use
  Company Number: GB-PFIZER INC-2011023688

PATIENT
  Age: 65 Year
  Sex: Female

DRUGS (1)
  1. EPANUTIN [Suspect]
     Indication: EPILEPSY
     Dosage: 150 MG, 2X/DAY

REACTIONS (5)
  - FALL [None]
  - SPINAL FRACTURE [None]
  - ANXIETY [None]
  - OSTEOPOROSIS [None]
  - HIP FRACTURE [None]
